FAERS Safety Report 9742184 (Version 5)
Quarter: 2014Q2

REPORT INFORMATION
  Report Type: Report from Study
  Country: US (occurrence: US)
  Receive Date: 20131210
  Receipt Date: 20140422
  Transmission Date: 20141212
  Serious: Yes (Life-Threatening, Other)
  Sender: FDA-Public Use
  Company Number: US-SA-2013SA126858

PATIENT
  Age: 34 Year
  Sex: Female
  Weight: 51.7 kg

DRUGS (9)
  1. ALEMTUZUMAB [Suspect]
     Indication: MULTIPLE SCLEROSIS
     Route: 042
     Dates: start: 20031208, end: 20031212
  2. ALEMTUZUMAB [Suspect]
     Indication: MULTIPLE SCLEROSIS
     Route: 042
     Dates: start: 20050221, end: 20050223
  3. ALEMTUZUMAB [Suspect]
     Indication: MULTIPLE SCLEROSIS
     Route: 042
     Dates: start: 20090309, end: 20090311
  4. METHYLPREDNISOLONE [Concomitant]
     Route: 042
     Dates: start: 20031208, end: 20031210
  5. METHYLPREDNISOLONE [Concomitant]
     Route: 042
     Dates: start: 20050221, end: 20050223
  6. METHYLPREDNISOLONE [Concomitant]
     Route: 042
     Dates: start: 20090309, end: 20090311
  7. DEBROX ^MARION^ [Concomitant]
     Indication: CERUMEN IMPACTION
  8. YAZ [Concomitant]
     Indication: CONTRACEPTION
     Route: 048
     Dates: start: 20121125
  9. YAZ [Concomitant]
     Indication: PROPHYLAXIS
     Route: 048
     Dates: start: 20121125

REACTIONS (2)
  - Metastatic malignant melanoma [Not Recovered/Not Resolved]
  - Lymphadenopathy [Recovered/Resolved with Sequelae]
